FAERS Safety Report 14140117 (Version 1)
Quarter: 2017Q4

REPORT INFORMATION
  Report Type: Spontaneous
  Country: US (occurrence: US)
  Receive Date: 20171030
  Receipt Date: 20171030
  Transmission Date: 20180321
  Serious: Yes (Other)
  Sender: FDA-Public Use
  Company Number: US-ADAREPHARM-2017-US-000009

PATIENT
  Sex: Female

DRUGS (1)
  1. KCL [Suspect]
     Active Substance: POTASSIUM CHLORIDE
     Dosage: 1500 MG, NDC# 62037-999-01, 1710988662
     Route: 048

REACTIONS (3)
  - Choking sensation [Unknown]
  - Product size issue [Unknown]
  - Product use complaint [Unknown]
